FAERS Safety Report 4800342-1 (Version None)
Quarter: 2005Q4

REPORT INFORMATION
  Report Type: 
  Country: None (occurrence: None)
  Receive Date: 20051012
  Receipt Date: 20051012
  Transmission Date: 20060501
  Serious: Yes (Other)
  Sender: FDA-Public Use
  Company Number: None

PATIENT
  Sex: Female
  Weight: 66.6788 kg

DRUGS (2)
  1. MAGNEVIST [Suspect]
     Indication: NUCLEAR MAGNETIC RESONANCE IMAGING
     Dosage: 0.2 ML/KG IV
     Route: 042
     Dates: start: 20050927
  2. MAGNEVIST [Suspect]
     Indication: SCAN WITH CONTRAST
     Dosage: 0.2 ML/KG IV
     Route: 042
     Dates: start: 20050927

REACTIONS (1)
  - URTICARIA [None]
